FAERS Safety Report 4541592-1 (Version None)
Quarter: 2004Q4

REPORT INFORMATION
  Report Type: 
  Country: None (occurrence: None)
  Receive Date: 20041227
  Receipt Date: 20041217
  Transmission Date: 20050328
  Serious: Yes (Other)
  Sender: FDA-Public Use
  Company Number: 2004-11-0626

PATIENT
  Age: 57 Year
  Sex: Female
  Weight: 57 kg

DRUGS (12)
  1. INTRON A [Suspect]
     Indication: HEPATITIS C
     Dosage: 3 MU*QD-BIW INTRAMUSCULAR
     Route: 030
     Dates: start: 20040615
  2. INTRON A [Suspect]
     Indication: HEPATITIS C
     Dosage: 3 MU*QD-BIW INTRAMUSCULAR
     Route: 030
     Dates: start: 20041102
  3. REBETOL [Suspect]
     Indication: HEPATITIS C
     Dosage: 400-800 MG* ORAL
     Route: 048
     Dates: start: 20040612
  4. REBETOL [Suspect]
     Indication: HEPATITIS C
     Dosage: 400-800 MG* ORAL
     Route: 048
     Dates: start: 20041102
  5. PROGRAF [Concomitant]
  6. PREDNISOLONE [Concomitant]
  7. REPAMIDE TABLETS [Concomitant]
  8. OMEPRAL (OMEPRAZOLE) TABLETS [Concomitant]
  9. ALFACALCIDOL TABLETS [Concomitant]
  10. ALENDRONATE SODIUM TABLETS [Concomitant]
  11. NIFEDIPINE [Concomitant]
  12. NOVOLIN INJECTABLE SOLUTION [Concomitant]

REACTIONS (1)
  - PUTAMEN HAEMORRHAGE [None]
